FAERS Safety Report 21878862 (Version 17)
Quarter: 2023Q4

REPORT INFORMATION
  Report Type: Spontaneous
  Country: US (occurrence: US)
  Receive Date: 20230118
  Receipt Date: 20231219
  Transmission Date: 20240110
  Serious: No
  Sender: FDA-Public Use
  Company Number: US-PFIZER INC-PV202300009065

PATIENT
  Age: 71 Year
  Sex: Female
  Weight: 88.889 kg

DRUGS (5)
  1. IBRANCE [Suspect]
     Active Substance: PALBOCICLIB
     Indication: Breast cancer metastatic
     Dosage: 125 MG, 1X/DAY
     Dates: start: 202209, end: 202210
  2. IBRANCE [Suspect]
     Active Substance: PALBOCICLIB
     Dosage: 100 MG, CYCLIC (ONCE A DAY FOR 21 DAYS FOLLOWED BY 7 DAYS OFF; EVERY CYCLE 28 DAYS; SWALLOW WHOLE)
     Route: 048
  3. IBRANCE [Suspect]
     Active Substance: PALBOCICLIB
     Dosage: 75 MG, CYCLIC AT 1 TABLET (75 MG TOTAL), ONCE DAILY FOR 14 DAYS FOLLOWED BY 7 DAYS OFF
     Route: 048
  4. IBRANCE [Suspect]
     Active Substance: PALBOCICLIB
     Dosage: 75 MG, CYCLIC FOR 21 DAYS (14 DAYS ON 7 DAYS OFF)
     Route: 048
     Dates: start: 20230207
  5. IBRANCE [Suspect]
     Active Substance: PALBOCICLIB
     Dosage: 75 MG, CYCLIC (TAKE 1 TABLET BY MOUTH DAILY FOR 14 DAYS FOLLOWED BY 7 DAYS OFF)
     Route: 048

REACTIONS (4)
  - White blood cell count decreased [Recovered/Resolved]
  - Hypoacusis [Unknown]
  - COVID-19 [Unknown]
  - Off label use [Unknown]

NARRATIVE: CASE EVENT DATE: 20221031
